FAERS Safety Report 19117069 (Version 5)
Quarter: 2023Q1

REPORT INFORMATION
  Report Type: Report from Study
  Country: CO (occurrence: CO)
  Receive Date: 20210409
  Receipt Date: 20230220
  Transmission Date: 20230418
  Serious: Yes (Other)
  Sender: FDA-Public Use
  Company Number: CO-NOVARTISPH-NVSC2021CO040548

PATIENT
  Sex: Female
  Weight: 70 kg

DRUGS (5)
  1. ELTROMBOPAG OLAMINE [Suspect]
     Active Substance: ELTROMBOPAG OLAMINE
     Indication: Immune thrombocytopenia
     Dosage: 50 MG, QD
     Route: 048
     Dates: start: 2005
  2. ELTROMBOPAG OLAMINE [Suspect]
     Active Substance: ELTROMBOPAG OLAMINE
     Dosage: 25 MG, BIW (1 TABLET)
     Route: 048
  3. ELTROMBOPAG OLAMINE [Suspect]
     Active Substance: ELTROMBOPAG OLAMINE
     Dosage: 25 MG (ONE TABLET MONDAY AND THURSDAY)
     Route: 048
  4. MYLANTA [Concomitant]
     Active Substance: ALUMINUM HYDROXIDE\DIMETHICONE\MAGNESIUM HYDROXIDE
     Indication: Reflux gastritis
     Dosage: UNK (STARTED FROM 1 WEEK AGO, 1 TABLESPOON AND HALF AN HOUR BEFORE THE MEALS)
     Route: 048
  5. LEVOTHYROXINE [Concomitant]
     Active Substance: LEVOTHYROXINE
     Indication: Hyperthyroidism
     Dosage: 100 MG, QD (15 YEARS AGO)
     Route: 048

REACTIONS (16)
  - Petechiae [Recovering/Resolving]
  - Neuropathy peripheral [Unknown]
  - Platelet count decreased [Recovering/Resolving]
  - Immune thrombocytopenia [Recovering/Resolving]
  - Disease recurrence [Recovering/Resolving]
  - Contusion [Unknown]
  - Back pain [Recovering/Resolving]
  - Influenza [Unknown]
  - Product dose omission issue [Unknown]
  - Cystitis interstitial [Unknown]
  - Gait inability [Unknown]
  - Hypoaesthesia [Unknown]
  - Intervertebral disc protrusion [Unknown]
  - Spinal osteoarthritis [Unknown]
  - Pain in extremity [Unknown]
  - Skin discolouration [Recovering/Resolving]
